FAERS Safety Report 8433941-9 (Version None)
Quarter: 2012Q2

REPORT INFORMATION
  Report Type: 
  Country: None (occurrence: None)
  Receive Date: 20120613
  Receipt Date: 20120604
  Transmission Date: 20120825
  Serious: Yes (Other)
  Sender: FDA-Public Use
  Company Number: US-PFIZER INC-2012133769

PATIENT
  Sex: Female
  Weight: 52.154 kg

DRUGS (2)
  1. DIPHENHYDRAMINE [Concomitant]
     Indication: INSOMNIA
     Dosage: UNK
  2. PRISTIQ [Suspect]
     Indication: DEPRESSION
     Dosage: 50 MG, 1X/DAY
     Route: 048
     Dates: start: 20120301

REACTIONS (2)
  - CONTUSION [None]
  - HAEMORRHAGE [None]
